FAERS Safety Report 9500625 (Version 2)
Quarter: 2013Q4

REPORT INFORMATION
  Report Type: Spontaneous
  Country: US (occurrence: US)
  Receive Date: 20130905
  Receipt Date: 20131018
  Transmission Date: 20140711
  Serious: Yes (Disabling, Other)
  Sender: FDA-Public Use
  Company Number: US-PFIZER INC-2013254837

PATIENT
  Age: 48 Year
  Sex: Female
  Weight: 68.03 kg

DRUGS (3)
  1. LYRICA [Suspect]
     Indication: DIABETIC NEUROPATHY
     Dosage: 150 MG (TWO 75MG CAPS), 1X/DAY
     Route: 048
     Dates: start: 2011
  2. LYRICA [Suspect]
     Dosage: 150 MG, AS NEEDED
     Route: 048
     Dates: end: 201307
  3. COPAXONE [Concomitant]
     Indication: ARTERIOSCLEROSIS
     Dosage: UNK

REACTIONS (2)
  - Intentional drug misuse [Unknown]
  - Multiple sclerosis [Unknown]
